FAERS Safety Report 9252985 (Version 1)
Quarter: 2013Q1

REPORT INFORMATION
  Report Type: Spontaneous
  Country: US (occurrence: None)
  Receive Date: 20130305
  Receipt Date: 20130305
  Transmission Date: 20140127
  Serious: Yes (Other)
  Sender: FDA-Public Use
  Company Number: 163-21880-12081998

PATIENT
  Age: 53 Year
  Sex: Female

DRUGS (4)
  1. REVLIMID [Suspect]
     Indication: PLASMA CELL MYELOMA
     Dosage: 28 IN 28 D
     Route: 048
     Dates: start: 20120803
  2. XANAX (ALPRAZOLAM) [Suspect]
  3. OMEPRAZOLE (OMEPRAZOLE) [Suspect]
  4. OXYCONTIN (OXYCODONE HYDROCHLORIDE) [Suspect]

REACTIONS (1)
  - Fatigue [None]
